FAERS Safety Report 20884191 (Version 2)
Quarter: 2022Q2

REPORT INFORMATION
  Report Type: Other
  Country: CZ (occurrence: None)
  Receive Date: 20220527
  Receipt Date: 20220531
  Transmission Date: 20220720
  Serious: Yes (Other)
  Sender: FDA-Public Use
  Company Number: CZ-ROCHE-3104625

PATIENT
  Age: 60 Year
  Sex: Female

DRUGS (4)
  1. RITUXIMAB [Suspect]
     Active Substance: RITUXIMAB
     Indication: Thrombotic thrombocytopenic purpura
     Dosage: OVERALL 4 DOSES WERE GIVEN
     Route: 042
  2. SOLU-MEDROL [Concomitant]
     Active Substance: METHYLPREDNISOLONE SODIUM SUCCINATE
     Indication: Thrombotic thrombocytopenic purpura
  3. CABLIVI [Concomitant]
     Active Substance: CAPLACIZUMAB-YHDP
     Indication: Thrombotic thrombocytopenic purpura
     Dosage: 10 MG INTRAVENOUSLY BEFORE THE FIRST PLASMAPHERESIS
     Route: 042
  4. CABLIVI [Concomitant]
     Active Substance: CAPLACIZUMAB-YHDP
     Dosage: 10 MG DAILY SUBCUTANEOUS AFTER THE TPE
     Route: 058

REACTIONS (2)
  - Sepsis [Recovering/Resolving]
  - Off label use [Unknown]
